FAERS Safety Report 7625236-8 (Version None)
Quarter: 2011Q3

REPORT INFORMATION
  Report Type: 
  Country: None (occurrence: None)
  Receive Date: 20110713
  Receipt Date: 20110628
  Transmission Date: 20111222
  Serious: Yes (Other)
  Sender: FDA-Public Use
  Company Number: 2011MA008189

PATIENT
  Sex: Male

DRUGS (2)
  1. SULFATRIM [Suspect]
     Indication: PROPHYLAXIS
  2. SULFATRIM [Suspect]
     Indication: PNEUMOCYSTIS JIROVECI INFECTION

REACTIONS (7)
  - ASPARTATE AMINOTRANSFERASE INCREASED [None]
  - ANAEMIA [None]
  - RETICULOCYTOSIS [None]
  - HAEMOGLOBIN DECREASED [None]
  - HAEMOLYSIS [None]
  - BLOOD LACTATE DEHYDROGENASE INCREASED [None]
  - BLOOD BILIRUBIN INCREASED [None]
